FAERS Safety Report 23161831 (Version 1)
Quarter: 2023Q4

REPORT INFORMATION
  Report Type: Spontaneous
  Country: US (occurrence: None)
  Receive Date: 20231108
  Receipt Date: 20231108
  Transmission Date: 20240110
  Serious: No
  Sender: FDA-Public Use
  Company Number: 2023A252709

PATIENT
  Sex: Male

DRUGS (2)
  1. LOKELMA [Interacting]
     Active Substance: SODIUM ZIRCONIUM CYCLOSILICATE
     Route: 048
  2. AMLODIPINE [Interacting]
     Active Substance: AMLODIPINE BESYLATE

REACTIONS (4)
  - Drug interaction [Unknown]
  - Weight increased [Unknown]
  - Oedema [Unknown]
  - Visual impairment [Unknown]
